FAERS Safety Report 17442267 (Version 2)
Quarter: 2020Q1

REPORT INFORMATION
  Report Type: Spontaneous
  Country: ES (occurrence: ES)
  Receive Date: 20200220
  Receipt Date: 20200319
  Transmission Date: 20200409
  Serious: Yes (Other)
  Sender: FDA-Public Use
  Company Number: ES-ELI_LILLY_AND_COMPANY-ES202002005862

PATIENT
  Age: 85 Year
  Sex: Female

DRUGS (3)
  1. FORSTEO 250UG/ML [Suspect]
     Active Substance: TERIPARATIDE
     Indication: PRODUCT USED FOR UNKNOWN INDICATION
     Dosage: UNK, UNKNOWN
     Route: 065
     Dates: start: 20191215
  2. LOGIMAX [Concomitant]
     Active Substance: FELODIPINE\METOPROLOL SUCCINATE
     Indication: PRODUCT USED FOR UNKNOWN INDICATION
     Dosage: 1 DOSAGE FORM, DAILY
  3. ORFIDAL [Concomitant]
     Active Substance: LORAZEPAM
     Indication: PRODUCT USED FOR UNKNOWN INDICATION
     Dosage: 1 MG, DAILY

REACTIONS (5)
  - Flushing [Unknown]
  - Hypotension [Unknown]
  - Oxygen saturation abnormal [Unknown]
  - Tachycardia [Unknown]
  - Respiratory distress [Unknown]

NARRATIVE: CASE EVENT DATE: 20191215
